FAERS Safety Report 25644064 (Version 1)
Quarter: 2025Q3

REPORT INFORMATION
  Report Type: Spontaneous
  Country: IN (occurrence: IN)
  Receive Date: 20250805
  Receipt Date: 20250805
  Transmission Date: 20251021
  Serious: Yes (Other)
  Sender: ACCORD
  Company Number: IN-MLMSERVICE-20220922-3811780-1

PATIENT
  Age: 32 Year
  Sex: Male

DRUGS (3)
  1. ITRACONAZOLE [Interacting]
     Active Substance: ITRACONAZOLE
     Indication: Phaeohyphomycosis
     Dates: start: 2022
  2. TACROLIMUS [Interacting]
     Active Substance: TACROLIMUS
     Indication: Immunosuppressant drug therapy
     Dates: start: 201901, end: 2022
  3. MYCOPHENOLATE MOFETIL [Concomitant]
     Active Substance: MYCOPHENOLATE MOFETIL
     Indication: Immunosuppressant drug therapy
     Dates: start: 201901, end: 2022

REACTIONS (4)
  - Blood creatinine increased [Recovering/Resolving]
  - Toxicity to various agents [Unknown]
  - Transplant dysfunction [Recovering/Resolving]
  - Drug interaction [Unknown]

NARRATIVE: CASE EVENT DATE: 20220101
